FAERS Safety Report 6941512-6 (Version None)
Quarter: 2010Q3

REPORT INFORMATION
  Report Type: 
  Country: None (occurrence: None)
  Receive Date: 20100825
  Receipt Date: 20100823
  Transmission Date: 20110219
  Serious: Yes (Hospitalization, Other)
  Sender: FDA-Public Use
  Company Number: US-ROXANE LABORATORIES, INC.-2010-RO-01121RO

PATIENT
  Age: 55 Year
  Sex: Male

DRUGS (4)
  1. CITALOPRAM HYDROBROMIDE [Suspect]
  2. VERAPAMIL [Suspect]
     Indication: HYPERTENSION
  3. ATORVASTATIN [Suspect]
  4. METAXALONE [Suspect]

REACTIONS (7)
  - CEREBRAL VASOCONSTRICTION [None]
  - CEREBROVASCULAR SPASM [None]
  - HEADACHE [None]
  - NAUSEA [None]
  - PHONOPHOBIA [None]
  - SUBARACHNOID HAEMORRHAGE [None]
  - VOMITING [None]
